FAERS Safety Report 8572170 (Version 3)
Quarter: 2013Q2

REPORT INFORMATION
  Report Type: Spontaneous
  Country: US (occurrence: US)
  Receive Date: 20120521
  Receipt Date: 20130422
  Transmission Date: 20140414
  Serious: Yes (Other)
  Sender: FDA-Public Use
  Company Number: US-ASTRAZENECA-2012SE17834

PATIENT
  Age: 47 Year
  Sex: Female
  Weight: 64.9 kg

DRUGS (20)
  1. NEXIUM [Suspect]
     Indication: GASTROOESOPHAGEAL REFLUX DISEASE
     Route: 048
     Dates: start: 20100519, end: 20120307
  2. NEXIUM [Suspect]
     Indication: GASTROOESOPHAGEAL REFLUX DISEASE
     Route: 048
     Dates: start: 20120307
  3. PRILOSEC [Suspect]
     Route: 048
  4. PREVACID [Concomitant]
  5. OXYCODONE [Concomitant]
  6. PRAVASTATIN [Concomitant]
  7. REMERON [Concomitant]
  8. METFORMIN HCL [Concomitant]
  9. DIAZEPAM [Concomitant]
  10. BUTYL [Concomitant]
  11. GABAPENTIN [Concomitant]
  12. VIIBRYD [Concomitant]
  13. BUPROPRION HCL [Concomitant]
  14. CHLOREIAZAPAXADE-CLIDINIUMCAP [Concomitant]
  15. CYCLOBENZAPRINE [Concomitant]
  16. EPI PEN [Concomitant]
     Dosage: AS REQUIRED
  17. TRIAMICINOLONE [Concomitant]
  18. ARTIFICIAL TEARS [Concomitant]
  19. ASA [Concomitant]
  20. MULTIVITAMIN [Concomitant]

REACTIONS (15)
  - Haematemesis [Unknown]
  - Weight decreased [Unknown]
  - Aphagia [Unknown]
  - Dyspepsia [Unknown]
  - Back disorder [Unknown]
  - Arthropathy [Unknown]
  - Contusion [Unknown]
  - Dyspepsia [Not Recovered/Not Resolved]
  - Nausea [Not Recovered/Not Resolved]
  - Gastric dilatation [Unknown]
  - Gastrooesophageal reflux disease [Unknown]
  - Drug hypersensitivity [Unknown]
  - Drug dose omission [Unknown]
  - Off label use [Unknown]
  - Drug ineffective [Unknown]
